FAERS Safety Report 4431986-7 (Version None)
Quarter: 2004Q3

REPORT INFORMATION
  Report Type: 
  Country: None (occurrence: None)
  Receive Date: 20040819
  Receipt Date: 20040804
  Transmission Date: 20050211
  Serious: Yes (Hospitalization)
  Sender: FDA-Public Use
  Company Number: 207995

PATIENT
  Age: 77 Year
  Sex: Female
  Weight: 53 kg

DRUGS (8)
  1. HERCEPTIN [Suspect]
     Indication: BREAST CANCER
     Dosage: SEE IMAGE
     Route: 042
     Dates: start: 20040702, end: 20040702
  2. HERCEPTIN [Suspect]
     Indication: BREAST CANCER
     Dosage: SEE IMAGE
     Route: 042
     Dates: start: 20040708, end: 20040708
  3. HERCEPTIN [Suspect]
     Indication: BREAST CANCER
     Dosage: SEE IMAGE
     Route: 042
     Dates: start: 20040722
  4. TAXOL [Suspect]
     Dosage: 110 MG,
     Dates: start: 20040709, end: 20040709
  5. FENTANYL CITRATE [Concomitant]
  6. DECADRON [Concomitant]
  7. ATARAX [Concomitant]
  8. SOLU-MEDROL (METHYLPERDINISOLONE SODIUM SUCCINATE) [Concomitant]

REACTIONS (9)
  - ALANINE AMINOTRANSFERASE INCREASED [None]
  - ASPARTATE AMINOTRANSFERASE INCREASED [None]
  - BLOOD ALKALINE PHOSPHATASE INCREASED [None]
  - BLOOD BILIRUBIN INCREASED [None]
  - HEPATIC FUNCTION ABNORMAL [None]
  - LIVER DISORDER [None]
  - MUSCULOSKELETAL STIFFNESS [None]
  - NAUSEA [None]
  - VOMITING [None]
